FAERS Safety Report 7906468-8 (Version None)
Quarter: 2011Q4

REPORT INFORMATION
  Report Type: 
  Country: None (occurrence: None)
  Receive Date: 20111110
  Receipt Date: 20111108
  Transmission Date: 20120403
  Serious: Yes (Death)
  Sender: FDA-Public Use
  Company Number: US-CELGENEUS-163-21660-11080537

PATIENT
  Sex: Female

DRUGS (2)
  1. ABRAXANE [Suspect]
     Dosage: 80 MILLIGRAM
     Route: 041
     Dates: start: 20110509, end: 20110606
  2. AVASTIN [Concomitant]
     Indication: BREAST CANCER
     Dosage: 2
     Route: 041
     Dates: start: 20110509, end: 20110606

REACTIONS (1)
  - NEOPLASM MALIGNANT [None]
